FAERS Safety Report 6204730-0 (Version None)
Quarter: 2009Q2

REPORT INFORMATION
  Report Type: 
  Country: None (occurrence: None)
  Receive Date: 20090527
  Receipt Date: 20090515
  Transmission Date: 20091009
  Serious: Yes (Hospitalization)
  Sender: FDA-Public Use
  Company Number: NO-PFIZER INC-2009215072

PATIENT
  Age: 66 Year

DRUGS (2)
  1. LYRICA [Suspect]
     Indication: NEURALGIA
     Dosage: 225 MG, 2X/DAY
     Route: 048
  2. LIPITOR [Concomitant]
     Dosage: UNK
     Route: 048

REACTIONS (3)
  - CONFUSIONAL STATE [None]
  - HYPOKALAEMIA [None]
  - SOMNOLENCE [None]
